FAERS Safety Report 12774590 (Version 4)
Quarter: 2017Q4

REPORT INFORMATION
  Report Type: Spontaneous
  Country: US (occurrence: US)
  Receive Date: 20160923
  Receipt Date: 20171019
  Transmission Date: 20180320
  Serious: No
  Sender: FDA-Public Use
  Company Number: US-BRISTOL-MYERS SQUIBB COMPANY-BMS-2016-076547

PATIENT
  Age: 65 Year
  Sex: Male

DRUGS (1)
  1. ORENCIA [Suspect]
     Active Substance: ABATACEPT
     Indication: RHEUMATOID ARTHRITIS
     Dosage: 125 MG, QWK
     Route: 058
     Dates: start: 20160420

REACTIONS (5)
  - Abnormal behaviour [Unknown]
  - Anxiety [Unknown]
  - Mood swings [Unknown]
  - Anger [Unknown]
  - Nervousness [Unknown]

NARRATIVE: CASE EVENT DATE: 20160517
